FAERS Safety Report 18508652 (Version 1)
Quarter: 2020Q4

REPORT INFORMATION
  Report Type: Report from Study
  Country: None (occurrence: AU)
  Receive Date: 20201117
  Receipt Date: 20201117
  Transmission Date: 20210114
  Serious: Yes (Hospitalization, Other)
  Sender: FDA-Public Use
  Company Number: AU-ABBVIE-15P-008-1387507-00

PATIENT
  Age: 68 Year
  Sex: Male
  Weight: 62.3 kg

DRUGS (7)
  1. DUODOPA [Suspect]
     Active Substance: CARBIDOPA\LEVODOPA
     Indication: PRODUCT USED FOR UNKNOWN INDICATION
     Dosage: 16 HOURS A DAY
     Route: 050
     Dates: start: 20120910
  2. MIRTAZAPINE. [Concomitant]
     Active Substance: MIRTAZAPINE
     Dosage: 20 MILLIGRAMS
     Route: 048
  3. DOCUSATE PLUS SENNA [Concomitant]
     Active Substance: DOCUSATE SODIUM\SENNOSIDES A AND B
     Indication: PRODUCT USED FOR UNKNOWN INDICATION
     Dosage: 50/8 MG, 2 PER DAY BD PRN
     Route: 048
  4. PRAMIPEXOLE. [Concomitant]
     Active Substance: PRAMIPEXOLE
     Indication: PRODUCT USED FOR UNKNOWN INDICATION
     Dosage: 20 MILLIGRAMS
     Route: 048
  5. DUODOPA [Suspect]
     Active Substance: CARBIDOPA\LEVODOPA
  6. MIRTAZAPINE. [Concomitant]
     Active Substance: MIRTAZAPINE
     Indication: PRODUCT USED FOR UNKNOWN INDICATION
     Dosage: 30 MILLIGRAMS, NOCTE
  7. PRAMIPEXOLE. [Concomitant]
     Active Substance: PRAMIPEXOLE
     Dosage: 20 MILLIGRAMS
     Route: 048

REACTIONS (16)
  - Gastric perforation [Unknown]
  - Stoma site extravasation [Recovered/Resolved]
  - Device loosening [Unknown]
  - Stoma site pain [Recovered/Resolved]
  - Device material issue [Unknown]
  - Stoma site discharge [Unknown]
  - Gastrostomy [Unknown]
  - Excessive granulation tissue [Unknown]
  - Stoma site infection [Recovered/Resolved]
  - Stoma site erythema [Recovered/Resolved]
  - Stoma site discharge [Unknown]
  - Stoma site infection [Recovered/Resolved]
  - Skin abrasion [Unknown]
  - Stoma site discharge [Unknown]
  - Bacterial disease carrier [Not Recovered/Not Resolved]
  - Stoma site infection [Unknown]

NARRATIVE: CASE EVENT DATE: 201303
